FAERS Safety Report 16557523 (Version 4)
Quarter: 2021Q3

REPORT INFORMATION
  Report Type: Report from Study
  Country: JP (occurrence: JP)
  Receive Date: 20190711
  Receipt Date: 20210706
  Transmission Date: 20211014
  Serious: Yes (Hospitalization, Other)
  Sender: FDA-Public Use
  Company Number: JP-CELLTRION INC.-2019JP020717

PATIENT

DRUGS (62)
  1. CT?P6 [Suspect]
     Active Substance: INVESTIGATIONAL BIOSIMILARS
     Indication: HER2 POSITIVE GASTRIC CANCER
     Dosage: 310 MILLIGRAM, QD
     Route: 041
     Dates: start: 20190108, end: 20190108
  2. CT?P6 [Suspect]
     Active Substance: INVESTIGATIONAL BIOSIMILARS
     Dosage: 310 MILLIGRAM, QD
     Route: 041
     Dates: start: 20190129, end: 20190129
  3. CT?P6 [Suspect]
     Active Substance: INVESTIGATIONAL BIOSIMILARS
     Dosage: 310 MILLIGRAM, QD
     Route: 041
     Dates: start: 20190219, end: 20190219
  4. CT?P6 [Suspect]
     Active Substance: INVESTIGATIONAL BIOSIMILARS
     Dosage: 310 MILLIGRAM, QD
     Route: 041
     Dates: start: 20190724, end: 20190724
  5. 5?FU [FLUOROURACIL] [Suspect]
     Active Substance: FLUOROURACIL
     Dosage: BOLUS 600MG, DIV 3600 MG
     Route: 042
     Dates: start: 20190122, end: 20190124
  6. 5?FU [FLUOROURACIL] [Suspect]
     Active Substance: FLUOROURACIL
     Dosage: UNK
     Route: 041
     Dates: start: 20190515, end: 20190517
  7. 5?FU [FLUOROURACIL] [Suspect]
     Active Substance: FLUOROURACIL
     Dosage: UNK
     Route: 041
     Dates: start: 20190710, end: 20190712
  8. PALONOSETRON HYDROCHLORIDE. [Concomitant]
     Active Substance: PALONOSETRON HYDROCHLORIDE
     Indication: PROPHYLAXIS OF NAUSEA AND VOMITING
     Dosage: UNK
     Dates: start: 20190108
  9. OXALIPLATIN. [Suspect]
     Active Substance: OXALIPLATIN
     Dosage: 78 MILLIGRAM, QD
     Route: 065
     Dates: start: 20190227, end: 20190227
  10. DEXAMETHASONE. [Suspect]
     Active Substance: DEXAMETHASONE
     Dosage: 6.6 MILLIGRAM, QD, DAY1
     Route: 065
     Dates: start: 20181127
  11. DEXAMETHASONE. [Suspect]
     Active Substance: DEXAMETHASONE
     Dosage: 9.9 UNK
     Route: 065
     Dates: start: 20181127, end: 20190327
  12. 5?FU [FLUOROURACIL] [Suspect]
     Active Substance: FLUOROURACIL
     Dosage: UNK
     Route: 041
     Dates: start: 20190821, end: 20190823
  13. 5?FU [FLUOROURACIL] [Suspect]
     Active Substance: FLUOROURACIL
     Dosage: UNK
     Route: 041
     Dates: start: 20190904, end: 20190906
  14. 5?FU [FLUOROURACIL] [Suspect]
     Active Substance: FLUOROURACIL
     Dosage: UNK
     Route: 041
     Dates: start: 20191016, end: 20191018
  15. GRANISETRON [Concomitant]
     Active Substance: GRANISETRON
     Indication: PROPHYLAXIS OF NAUSEA AND VOMITING
     Dosage: UNK
     Dates: start: 20181127
  16. CT?P6 [Suspect]
     Active Substance: INVESTIGATIONAL BIOSIMILARS
     Dosage: 310 MILLIGRAM, QD
     Route: 041
     Dates: start: 20190424, end: 20190424
  17. CT?P6 [Suspect]
     Active Substance: INVESTIGATIONAL BIOSIMILARS
     Dosage: 310 MILLIGRAM, QD
     Route: 041
     Dates: start: 20190626, end: 20190626
  18. CT?P6 [Suspect]
     Active Substance: INVESTIGATIONAL BIOSIMILARS
     Dosage: 310 MILLIGRAM, QD
     Route: 041
     Dates: start: 20190717, end: 20190717
  19. CT?P6 [Suspect]
     Active Substance: INVESTIGATIONAL BIOSIMILARS
     Dosage: 310 MILLIGRAM, QD
     Route: 041
     Dates: start: 20191009, end: 20191009
  20. OXALIPLATIN. [Suspect]
     Active Substance: OXALIPLATIN
     Dosage: 78 MILLIGRAM, QD
     Route: 065
     Dates: start: 20190313, end: 20190313
  21. DEXAMETHASONE. [Suspect]
     Active Substance: DEXAMETHASONE
     Dosage: 6.6 MILLIGRAM, QD, DAY2, 3
     Route: 065
     Dates: start: 20181127
  22. DEXAMETHASONE. [Suspect]
     Active Substance: DEXAMETHASONE
     Dosage: 6.6 MILLIGRAM, QD, DAY2, 3
     Route: 065
     Dates: start: 20181129, end: 20190329
  23. 5?FU [FLUOROURACIL] [Suspect]
     Active Substance: FLUOROURACIL
     Dosage: UNK
     Route: 041
     Dates: start: 20190327, end: 20190329
  24. 5?FU [FLUOROURACIL] [Suspect]
     Active Substance: FLUOROURACIL
     Dosage: UNK
     Route: 041
     Dates: start: 20190416, end: 20190418
  25. 5?FU [FLUOROURACIL] [Suspect]
     Active Substance: FLUOROURACIL
     Dosage: UNK
     Route: 041
     Dates: start: 20190612, end: 20190624
  26. CT?P6 [Suspect]
     Active Substance: INVESTIGATIONAL BIOSIMILARS
     Dosage: 310 MILLIGRAM, QD
     Route: 041
     Dates: start: 20190515, end: 20190515
  27. CT?P6 [Suspect]
     Active Substance: INVESTIGATIONAL BIOSIMILARS
     Dosage: 310 MILLIGRAM, QD
     Route: 041
     Dates: start: 20191030, end: 20191030
  28. CT?P6 [Suspect]
     Active Substance: INVESTIGATIONAL BIOSIMILARS
     Dosage: 310 MILLIGRAM, QD
     Route: 041
     Dates: start: 20200129, end: 20200129
  29. CT?P6 [Suspect]
     Active Substance: INVESTIGATIONAL BIOSIMILARS
     Dosage: 310 MILLIGRAM, QD
     Route: 041
     Dates: start: 20200311
  30. OXALIPLATIN. [Suspect]
     Active Substance: OXALIPLATIN
     Dosage: 100 MILLIGRAM, QD
     Route: 065
     Dates: start: 20190122, end: 20190122
  31. DEXAMETHASONE. [Suspect]
     Active Substance: DEXAMETHASONE
     Dosage: 9.9 UNK
     Route: 065
     Dates: start: 20190108, end: 20190329
  32. 5?FU [FLUOROURACIL] [Suspect]
     Active Substance: FLUOROURACIL
     Indication: HER2 POSITIVE GASTRIC CANCER
     Dosage: BOLUS 600MG, DIV 3600 MG
     Route: 042
     Dates: start: 20190108, end: 20190110
  33. 5?FU [FLUOROURACIL] [Suspect]
     Active Substance: FLUOROURACIL
     Dosage: UNK
     Route: 041
     Dates: start: 20190529, end: 20190531
  34. 5?FU [FLUOROURACIL] [Suspect]
     Active Substance: FLUOROURACIL
     Dosage: UNK
     Route: 041
     Dates: start: 20190918, end: 20190920
  35. 5?FU [FLUOROURACIL] [Suspect]
     Active Substance: FLUOROURACIL
     Dosage: UNK
     Route: 041
     Dates: start: 20191030, end: 20191101
  36. CT?P6 [Suspect]
     Active Substance: INVESTIGATIONAL BIOSIMILARS
     Dosage: 310 MILLIGRAM, QD
     Route: 041
     Dates: start: 20190807, end: 20190807
  37. CT?P6 [Suspect]
     Active Substance: INVESTIGATIONAL BIOSIMILARS
     Dosage: 310 MILLIGRAM, QD
     Route: 041
     Dates: start: 20190918, end: 20190918
  38. CT?P6 [Suspect]
     Active Substance: INVESTIGATIONAL BIOSIMILARS
     Dosage: 310 MILLIGRAM, QD
     Route: 041
     Dates: start: 20191120, end: 20191120
  39. CT?P6 [Suspect]
     Active Substance: INVESTIGATIONAL BIOSIMILARS
     Dosage: 310 MILLIGRAM, QD
     Route: 041
     Dates: start: 20191212, end: 20191212
  40. OXALIPLATIN. [Suspect]
     Active Substance: OXALIPLATIN
     Dosage: 78 MILLIGRAM, QD
     Route: 065
     Dates: start: 20190213, end: 20190213
  41. DEXAMETHASONE. [Suspect]
     Active Substance: DEXAMETHASONE
     Indication: PROPHYLAXIS OF NAUSEA AND VOMITING
     Dosage: 6.6 MILLIGRAM, QD, DAY1
     Route: 065
     Dates: start: 20180927, end: 20181126
  42. 5?FU [FLUOROURACIL] [Suspect]
     Active Substance: FLUOROURACIL
     Dosage: BOLUS 500MG, DIV 3000 MG
     Route: 042
     Dates: start: 20190213, end: 20190215
  43. 5?FU [FLUOROURACIL] [Suspect]
     Active Substance: FLUOROURACIL
     Dosage: UNK
     Route: 041
     Dates: start: 20190807, end: 20190809
  44. CT?P6 [Suspect]
     Active Substance: INVESTIGATIONAL BIOSIMILARS
     Dosage: 310 MILLIGRAM, QD
     Route: 041
     Dates: start: 20190403, end: 20190403
  45. CT?P6 [Suspect]
     Active Substance: INVESTIGATIONAL BIOSIMILARS
     Dosage: 310 MILLIGRAM, QD
     Route: 041
     Dates: start: 20190605, end: 20190605
  46. CT?P6 [Suspect]
     Active Substance: INVESTIGATIONAL BIOSIMILARS
     Dosage: 310 MILLIGRAM, QD
     Route: 041
     Dates: start: 20200219, end: 20200219
  47. OXALIPLATIN. [Suspect]
     Active Substance: OXALIPLATIN
     Indication: HER2 POSITIVE GASTRIC CANCER
     Dosage: 100 MILLIGRAM, QD
     Route: 065
     Dates: start: 20190108, end: 20190108
  48. 5?FU [FLUOROURACIL] [Suspect]
     Active Substance: FLUOROURACIL
     Dosage: UNK
     Route: 041
     Dates: start: 20190724, end: 20190726
  49. LEVOFOLINATE [Suspect]
     Active Substance: LEVOLEUCOVORIN CALCIUM
     Indication: HER2 POSITIVE GASTRIC CANCER
     Dosage: 300 MG, QD
     Route: 065
     Dates: start: 20180927
  50. CT?P6 [Suspect]
     Active Substance: INVESTIGATIONAL BIOSIMILARS
     Dosage: 310 MILLIGRAM, QD
     Route: 041
     Dates: start: 20200311, end: 20200311
  51. OXALIPLATIN. [Suspect]
     Active Substance: OXALIPLATIN
     Dosage: 78 MILLIGRAM, QD
     Route: 065
     Dates: start: 20190327, end: 20190327
  52. DEXAMETHASONE. [Suspect]
     Active Substance: DEXAMETHASONE
     Dosage: 6.6 MILLIGRAM, QD, DAY1
     Route: 065
     Dates: start: 20190416
  53. 5?FU [FLUOROURACIL] [Suspect]
     Active Substance: FLUOROURACIL
     Dosage: BOLUS 500MG, DIV 3000 MG
     Route: 042
     Dates: start: 20190313, end: 20190315
  54. 5?FU [FLUOROURACIL] [Suspect]
     Active Substance: FLUOROURACIL
     Dosage: UNK
     Route: 041
     Dates: start: 20190501, end: 20190503
  55. 5?FU [FLUOROURACIL] [Suspect]
     Active Substance: FLUOROURACIL
     Dosage: UNK
     Route: 041
     Dates: start: 20190626, end: 20190628
  56. 5?FU [FLUOROURACIL] [Suspect]
     Active Substance: FLUOROURACIL
     Dosage: UNK
     Route: 041
     Dates: start: 20190628, end: 20190630
  57. CT?P6 [Suspect]
     Active Substance: INVESTIGATIONAL BIOSIMILARS
     Dosage: 310 MILLIGRAM, QD
     Route: 041
     Dates: start: 20190313, end: 20190313
  58. CT?P6 [Suspect]
     Active Substance: INVESTIGATIONAL BIOSIMILARS
     Dosage: 310 MILLIGRAM, QD
     Route: 041
     Dates: start: 20190828, end: 20190828
  59. CT?P6 [Suspect]
     Active Substance: INVESTIGATIONAL BIOSIMILARS
     Dosage: 310 MILLIGRAM, QD
     Route: 041
     Dates: start: 20200108, end: 20200108
  60. DEXAMETHASONE. [Suspect]
     Active Substance: DEXAMETHASONE
     Dosage: 6.6 MILLIGRAM, QD, DAY2, 3
     Route: 065
     Dates: start: 20190108, end: 20190329
  61. 5?FU [FLUOROURACIL] [Suspect]
     Active Substance: FLUOROURACIL
     Dosage: BOLUS 500MG, DIV 3000 MG
     Route: 042
     Dates: start: 20190227, end: 20190301
  62. 5?FU [FLUOROURACIL] [Suspect]
     Active Substance: FLUOROURACIL
     Dosage: UNK
     Route: 041
     Dates: start: 20191002, end: 20191004

REACTIONS (10)
  - Neuropathy peripheral [Recovering/Resolving]
  - Nausea [Recovered/Resolved]
  - Pneumonia [Recovered/Resolved]
  - Anaemia [Not Recovered/Not Resolved]
  - Platelet count decreased [Not Recovered/Not Resolved]
  - Decreased appetite [Recovered/Resolved]
  - Hyponatraemia [Recovered/Resolved]
  - Blood lactate dehydrogenase increased [Not Recovered/Not Resolved]
  - Neutrophil count decreased [Recovered/Resolved]
  - Underdose [Unknown]

NARRATIVE: CASE EVENT DATE: 20190108
